FAERS Safety Report 20876681 (Version 1)
Quarter: 2022Q2

REPORT INFORMATION
  Report Type: Spontaneous
  Country: US (occurrence: US)
  Receive Date: 20220526
  Receipt Date: 20220526
  Transmission Date: 20220720
  Serious: Yes (Other)
  Sender: FDA-Public Use
  Company Number: US-BAUSCH-BL-2022-012159

PATIENT
  Sex: Female

DRUGS (1)
  1. ARTIFICIAL TEARS LUBRICANT EYE DROPS [Suspect]
     Active Substance: GLYCERIN\PROPYLENE GLYCOL
     Indication: Dry eye
     Route: 047
     Dates: start: 2022

REACTIONS (2)
  - Cataract [Unknown]
  - Scleral discolouration [Unknown]

NARRATIVE: CASE EVENT DATE: 20220101
